FAERS Safety Report 12321588 (Version 1)
Quarter: 2016Q2

REPORT INFORMATION
  Report Type: Spontaneous
  Country: US (occurrence: None)
  Receive Date: 20160429
  Receipt Date: 20160429
  Transmission Date: 20160815
  Serious: No
  Sender: FDA-Public Use
  Company Number: None

PATIENT
  Age: 76 Year
  Sex: Female

DRUGS (8)
  1. IBRANCE [Suspect]
     Active Substance: PALBOCICLIB
     Indication: BREAST CANCER
     Dosage: 125 MG - 1 CAPSULE EVERYDAY ORAL
     Route: 048
     Dates: start: 20160210
  2. METOPROLOL. [Concomitant]
     Active Substance: METOPROLOL
  3. CALCIUM [Concomitant]
     Active Substance: CALCIUM
  4. LETROZOLE. [Concomitant]
     Active Substance: LETROZOLE
  5. ASPIRIN. [Concomitant]
     Active Substance: ASPIRIN
  6. CENTRUM [Concomitant]
     Active Substance: VITAMINS
  7. HCTZ [Concomitant]
     Active Substance: HYDROCHLOROTHIAZIDE
  8. DILTIAZEM [Concomitant]
     Active Substance: DILTIAZEM

REACTIONS (2)
  - Drug ineffective [None]
  - Full blood count increased [None]

NARRATIVE: CASE EVENT DATE: 20160421
